FAERS Safety Report 7821262-4 (Version None)
Quarter: 2011Q4

REPORT INFORMATION
  Report Type: 
  Country: None (occurrence: None)
  Receive Date: 20111018
  Receipt Date: 20110420
  Transmission Date: 20120403
  Serious: No
  Sender: FDA-Public Use
  Company Number: US-ASTRAZENECA-2011SE22971

PATIENT
  Sex: Female

DRUGS (4)
  1. ALPRAZOLAM [Concomitant]
  2. VITAMIN TAB [Concomitant]
  3. SYMBICORT [Suspect]
     Indication: BRONCHITIS
     Route: 055
     Dates: start: 20100101
  4. PLAVIX [Concomitant]

REACTIONS (6)
  - OFF LABEL USE [None]
  - VOMITING [None]
  - NERVOUSNESS [None]
  - LIP SWELLING [None]
  - ORAL CANDIDIASIS [None]
  - LIP BLISTER [None]
